FAERS Safety Report 4785963-7 (Version None)
Quarter: 2005Q3

REPORT INFORMATION
  Report Type: 
  Country: None (occurrence: None)
  Receive Date: 20050929
  Receipt Date: 20050916
  Transmission Date: 20060218
  Serious: Yes (Hospitalization, Other)
  Sender: FDA-Public Use
  Company Number: 2005130296

PATIENT
  Age: 53 Year
  Sex: Female
  Weight: 97.5234 kg

DRUGS (4)
  1. DETROL LA [Suspect]
     Indication: POLLAKIURIA
     Dosage: (4 MG, QD INTERVAL:  EVERY DAY)
     Dates: start: 20050901, end: 20050914
  2. ACETYLSALICYLIC ACID SRT [Concomitant]
  3. MULTIVITAMIN [Concomitant]
  4. CALCIUM WITH VITAMIN D (CALCIUM PHOSPHATE SODIUM LACTATE, ERGOCALCIFER [Concomitant]

REACTIONS (7)
  - CELLULITIS [None]
  - ERYTHEMA [None]
  - FACE OEDEMA [None]
  - NECK PAIN [None]
  - SINUS HEADACHE [None]
  - SINUSITIS [None]
  - VISION BLURRED [None]
